FAERS Safety Report 9240984 (Version 1)
Quarter: 2013Q2

REPORT INFORMATION
  Report Type: Spontaneous
  Country: US (occurrence: None)
  Receive Date: 20130418
  Receipt Date: 20130418
  Transmission Date: 20140414
  Serious: Yes (Other)
  Sender: FDA-Public Use
  Company Number: None

PATIENT
  Age: 73 Year
  Sex: Female
  Weight: 63.5 kg

DRUGS (1)
  1. LISINOPRIL [Suspect]
     Indication: BLOOD PRESSURE INCREASED
     Dates: start: 201212, end: 201302

REACTIONS (5)
  - Thermal burn [None]
  - Oral discomfort [None]
  - Thermal burn [None]
  - Skin exfoliation [None]
  - Movement disorder [None]
